FAERS Safety Report 15334653 (Version 1)
Quarter: 2018Q3

REPORT INFORMATION
  Report Type: Spontaneous
  Country: US (occurrence: US)
  Receive Date: 20180827
  Receipt Date: 20180827
  Transmission Date: 20181010
  Serious: Yes (Hospitalization)
  Sender: FDA-Public Use
  Company Number: None

PATIENT
  Age: 32 Year
  Sex: Female

DRUGS (5)
  1. METHOCARBAM [Concomitant]
     Active Substance: METHOCARBAMOL
  2. DICLOFENAC [Concomitant]
     Active Substance: DICLOFENAC
  3. ORKAMBI [Suspect]
     Active Substance: IVACAFTOR\LUMACAFTOR
     Indication: CYSTIC FIBROSIS
     Dosage: ?          OTHER FREQUENCY:2 TABS EVERY 12HR;?
     Route: 048
     Dates: start: 20180512
  4. GABAPENTIN. [Concomitant]
     Active Substance: GABAPENTIN
  5. VENTOLIN [Concomitant]
     Active Substance: ALBUTEROL SULFATE

REACTIONS (2)
  - Pneumothorax [None]
  - Secretion discharge [None]

NARRATIVE: CASE EVENT DATE: 20180809
